FAERS Safety Report 24429298 (Version 2)
Quarter: 2024Q4

REPORT INFORMATION
  Report Type: Spontaneous
  Country: JP (occurrence: JP)
  Receive Date: 20241011
  Receipt Date: 20241104
  Transmission Date: 20250114
  Serious: Yes (Other)
  Sender: GLAXOSMITHKLINE
  Company Number: JP-GLAXOSMITHKLINE INC-JP2024JPN123416

PATIENT

DRUGS (4)
  1. ZOVIRAX [Suspect]
     Active Substance: ACYCLOVIR
     Indication: Herpes simplex necrotising retinopathy
     Dosage: 1500 MG, QD
  2. VALTREX [Suspect]
     Active Substance: VALACYCLOVIR HYDROCHLORIDE
     Indication: Herpes simplex necrotising retinopathy
     Dosage: 3000 MG, QD
  3. ACYCLOVIR [Suspect]
     Active Substance: ACYCLOVIR
     Indication: Herpes simplex necrotising retinopathy
     Dosage: UNK, QD, 5 TIMES IN RIGHT EYE
  4. GANCICLOVIR [Suspect]
     Active Substance: GANCICLOVIR
     Dosage: UNK

REACTIONS (18)
  - Herpes simplex necrotising retinopathy [Recovered/Resolved]
  - Anterior chamber inflammation [Unknown]
  - Retinal haemorrhage [Unknown]
  - Cataract [Unknown]
  - Retinal degeneration [Unknown]
  - Macular oedema [Unknown]
  - Retinal occlusive vasculitis [Unknown]
  - Serous retinal detachment [Unknown]
  - Optic neuritis [Unknown]
  - Retinal vascular occlusion [Unknown]
  - Retinal infiltrates [Recovered/Resolved]
  - Retinoschisis [Unknown]
  - Drug tolerance [Unknown]
  - Drug eruption [Unknown]
  - Visual acuity reduced [Unknown]
  - Vitreous floaters [Unknown]
  - Eye pain [Unknown]
  - Product use in unapproved indication [Unknown]
